FAERS Safety Report 15147374 (Version 3)
Quarter: 2018Q3

REPORT INFORMATION
  Report Type: Report from Study
  Country: DE (occurrence: DE)
  Receive Date: 20180716
  Receipt Date: 20180727
  Transmission Date: 20181010
  Serious: Yes (Hospitalization, Other)
  Sender: FDA-Public Use
  Company Number: DE-TEVA-2018-DE-924911

PATIENT
  Age: 52 Year
  Sex: Female
  Weight: 134 kg

DRUGS (13)
  1. DOCETAXEL. [Suspect]
     Active Substance: DOCETAXEL
     Indication: BREAST CANCER
     Dosage: DAILY DOSE: 150 MG MILLGRAM(S) EVERY 3 WEEKS
     Route: 042
     Dates: start: 20160922, end: 20170615
  2. PERTUZUMAB. [Suspect]
     Active Substance: PERTUZUMAB
     Indication: BREAST CANCER
     Dosage: DATE OF MOST RECENT DOSE: 09/NOV/2016
     Route: 042
     Dates: start: 20160916, end: 20161109
  3. SYMBICORT [Concomitant]
     Active Substance: BUDESONIDE\FORMOTEROL FUMARATE DIHYDRATE
     Indication: METASTASES TO PLEURA
     Route: 055
     Dates: start: 201606
  4. FUROSEMID [Concomitant]
     Active Substance: FUROSEMIDE
     Dosage: 40 MILLIGRAM DAILY; DAILY DOSE: 40 MG MILLGRAM(S) EVERY DAYS
     Route: 048
     Dates: start: 20160920
  5. SPIRIVA [Concomitant]
     Active Substance: TIOTROPIUM BROMIDE MONOHYDRATE
     Indication: METASTASES TO PLEURA
     Dosage: DAILY DOSE: 18 MG MILLGRAM(S) EVERY DAYS
     Route: 055
     Dates: start: 201606
  6. OXYGEN. [Concomitant]
     Active Substance: OXYGEN
     Indication: METASTASES TO PLEURA
     Dosage: 2.0 L/MIN
     Route: 045
     Dates: start: 20160906
  7. DEXAMETHASONE. [Concomitant]
     Active Substance: DEXAMETHASONE
     Indication: PROPHYLAXIS
     Route: 048
     Dates: start: 20160922
  8. SALBUTAMOL [Concomitant]
     Active Substance: ALBUTEROL
     Indication: ASTHMA
     Route: 055
  9. HALOPERIDOL. [Concomitant]
     Active Substance: HALOPERIDOL
     Dosage: DAILY DOSE: 6 MG MILLGRAM(S) EVERY DAYS
     Route: 048
  10. SPIRIVA RESPIMAT [Concomitant]
     Active Substance: TIOTROPIUM BROMIDE
     Dosage: DAILY DOSE: 5 MG MILLGRAM(S) EVERY DAYS
     Route: 048
  11. PACLITAXEL. [Suspect]
     Active Substance: PACLITAXEL
     Indication: PRODUCT USED FOR UNKNOWN INDICATION
     Dosage: DAILY DOSE: 150 MG MILLGRAM(S) EVERY 3 WEEKS
     Route: 042
     Dates: start: 20160924
  12. HERCEPTIN [Suspect]
     Active Substance: TRASTUZUMAB
     Indication: BREAST CANCER
     Dosage: DAILY DOSE: 876 MG MILLGRAM(S) EVERY 3 WEEKS
     Dates: start: 20160924, end: 20170915
  13. PANTOPRAZOL [Concomitant]
     Active Substance: PANTOPRAZOLE SODIUM
     Indication: PRODUCT USED FOR UNKNOWN INDICATION
     Dosage: DAILY DOSE: 40 MG MILLGRAM(S) EVERY DAYS

REACTIONS (13)
  - Oesophageal candidiasis [Recovered/Resolved]
  - Gastritis [Recovered/Resolved]
  - Lethargy [Not Recovered/Not Resolved]
  - Stomatitis [Recovered/Resolved]
  - Productive cough [Recovered/Resolved]
  - Dysgeusia [Recovered/Resolved]
  - Pulmonary function test decreased [Recovered/Resolved]
  - Arthralgia [Recovered/Resolved]
  - Constipation [Recovered/Resolved]
  - Painful respiration [Recovered/Resolved]
  - Chills [Recovered/Resolved]
  - Anaphylactic reaction [Recovered/Resolved]
  - Breast cancer [Recovered/Resolved]

NARRATIVE: CASE EVENT DATE: 20160924
